FAERS Safety Report 25371549 (Version 2)
Quarter: 2025Q3

REPORT INFORMATION
  Report Type: Spontaneous
  Country: US (occurrence: US)
  Receive Date: 20250529
  Receipt Date: 20250828
  Transmission Date: 20251021
  Serious: No
  Sender: JOHNSON AND JOHNSON
  Company Number: US-JNJFOC-20250530998

PATIENT
  Age: 59 Year
  Sex: Female

DRUGS (5)
  1. MACITENTAN\TADALAFIL [Suspect]
     Active Substance: MACITENTAN\TADALAFIL
     Indication: Pulmonary arterial hypertension
     Route: 048
  2. TREPROSTINIL [Suspect]
     Active Substance: TREPROSTINIL
     Indication: Pulmonary arterial hypertension
     Dates: start: 202412
  3. TREPROSTINIL [Suspect]
     Active Substance: TREPROSTINIL
     Dates: start: 202412
  4. TREPROSTINIL [Suspect]
     Active Substance: TREPROSTINIL
     Dates: start: 202412
  5. TADALAFIL [Suspect]
     Active Substance: TADALAFIL

REACTIONS (12)
  - Vision blurred [Unknown]
  - Headache [Not Recovered/Not Resolved]
  - Pain in jaw [Not Recovered/Not Resolved]
  - Pain [Unknown]
  - Pain in extremity [Not Recovered/Not Resolved]
  - Dyspnoea [Not Recovered/Not Resolved]
  - Fatigue [Not Recovered/Not Resolved]
  - Dizziness [Not Recovered/Not Resolved]
  - Decreased activity [Not Recovered/Not Resolved]
  - Mood altered [Not Recovered/Not Resolved]
  - Neck pain [Unknown]
  - Ocular discomfort [Unknown]
